FAERS Safety Report 22803100 (Version 3)
Quarter: 2024Q2

REPORT INFORMATION
  Report Type: Spontaneous
  Country: DE (occurrence: DE)
  Receive Date: 20230809
  Receipt Date: 20240523
  Transmission Date: 20240716
  Serious: Yes (Other)
  Sender: FDA-Public Use
  Company Number: DE-SANDOZ-SDZ2023DE003414

PATIENT
  Sex: Female
  Weight: 75 kg

DRUGS (5)
  1. EXEMESTANE [Suspect]
     Active Substance: EXEMESTANE
     Indication: Breast cancer metastatic
     Dosage: 25 MG DAILY
     Route: 048
     Dates: start: 20190809
  2. KISQALI [Suspect]
     Active Substance: RIBOCICLIB
     Indication: Breast cancer metastatic
     Dosage: 600 MILLIGRAM, DAILY (600 MG DAILY 21 DAYS TAKE IT + 7 PAUSE)
     Route: 048
     Dates: start: 20190809
  3. KISQALI [Suspect]
     Active Substance: RIBOCICLIB
     Dosage: 600 MILLIGRAM, DAILY (600 MG DAILY 21 DAYS TAKE IT + 7 PAUSE)
     Route: 048
     Dates: start: 20210814
  4. KISQALI [Suspect]
     Active Substance: RIBOCICLIB
     Dosage: 0 UNK, ONCE A DAY
     Route: 048
     Dates: start: 20210805
  5. KISQALI [Suspect]
     Active Substance: RIBOCICLIB
     Dosage: UNK
     Route: 048

REACTIONS (5)
  - Anaemia [Not Recovered/Not Resolved]
  - Cardiac failure [Unknown]
  - Dyspnoea exertional [Not Recovered/Not Resolved]
  - Diarrhoea [Recovered/Resolved]
  - Constipation [Not Recovered/Not Resolved]

NARRATIVE: CASE EVENT DATE: 20190829
